FAERS Safety Report 12444414 (Version 1)
Quarter: 2016Q2

REPORT INFORMATION
  Report Type: Report from Study
  Country: FR (occurrence: FR)
  Receive Date: 20160607
  Receipt Date: 20160607
  Transmission Date: 20160815
  Serious: Yes (Death, Other)
  Sender: FDA-Public Use
  Company Number: FR-CELGENEUS-FRA-2015060005

PATIENT

DRUGS (3)
  1. VELCADE [Concomitant]
     Active Substance: BORTEZOMIB
     Indication: PLASMA CELL MYELOMA
     Route: 065
  2. DEXAMETHASONE. [Concomitant]
     Active Substance: DEXAMETHASONE
     Indication: PLASMA CELL MYELOMA
     Route: 065
  3. REVLIMID [Suspect]
     Active Substance: LENALIDOMIDE
     Indication: PLASMA CELL MYELOMA
     Route: 048

REACTIONS (44)
  - Hepatitis [Unknown]
  - Neoplasm [Unknown]
  - Pancreatic carcinoma [Unknown]
  - Renal cell carcinoma [Unknown]
  - Stomatitis [Unknown]
  - Diarrhoea [Unknown]
  - Lip and/or oral cavity cancer [Unknown]
  - Bowen^s disease [Unknown]
  - Squamous cell carcinoma [Unknown]
  - Second primary malignancy [Unknown]
  - Deep vein thrombosis [Unknown]
  - Plasma cell myeloma recurrent [Unknown]
  - Anaemia [Unknown]
  - Thyroid cancer [Unknown]
  - Basal cell carcinoma [Unknown]
  - Neutropenia [Unknown]
  - Plasma cell myeloma [Unknown]
  - Vomiting [Unknown]
  - Fatigue [Unknown]
  - Transplantation complication [Fatal]
  - Colon cancer [Unknown]
  - Lung neoplasm malignant [Unknown]
  - Respiratory tract infection [Unknown]
  - Nausea [Unknown]
  - Pyrexia [Unknown]
  - Acute myeloid leukaemia [Unknown]
  - Ischaemic cardiomyopathy [Unknown]
  - Porocarcinoma [Unknown]
  - Nervous system disorder [Unknown]
  - Neuropathy peripheral [Unknown]
  - Death [Fatal]
  - Ischaemic stroke [Unknown]
  - Breast cancer [Unknown]
  - Gastric cancer [Unknown]
  - Glioblastoma [Unknown]
  - Prostate cancer [Unknown]
  - Febrile neutropenia [Unknown]
  - Sepsis [Unknown]
  - General physical health deterioration [Unknown]
  - Rash [Unknown]
  - Myelodysplastic syndrome [Unknown]
  - Malignant melanoma [Unknown]
  - Pulmonary embolism [Unknown]
  - Thrombocytopenia [Unknown]
